FAERS Safety Report 6240188-3 (Version None)
Quarter: 2009Q2

REPORT INFORMATION
  Report Type: 
  Country: None (occurrence: None)
  Receive Date: 20090623
  Receipt Date: 20081008
  Transmission Date: 20091009
  Serious: No
  Sender: FDA-Public Use
  Company Number: US-ASTRAZENECA-2003UW06633

PATIENT
  Age: 70 Year
  Sex: Female
  Weight: 48.1 kg

DRUGS (6)
  1. PULMICORT-100 [Suspect]
     Indication: CHRONIC OBSTRUCTIVE PULMONARY DISEASE
     Route: 055
     Dates: start: 20000101
  2. PULMICORT-100 [Suspect]
     Indication: DYSPNOEA
     Route: 055
     Dates: start: 20000101
  3. PULMICORT-100 [Suspect]
     Route: 055
     Dates: end: 20080901
  4. PULMICORT-100 [Suspect]
     Route: 055
     Dates: end: 20080901
  5. GUAIFENESIN [Suspect]
  6. COMBIVENT [Concomitant]

REACTIONS (5)
  - DRUG INEFFECTIVE [None]
  - DYSPNOEA [None]
  - FEELING ABNORMAL [None]
  - NAUSEA [None]
  - WHEEZING [None]
